FAERS Safety Report 9252871 (Version 1)
Quarter: 2013Q2

REPORT INFORMATION
  Report Type: Spontaneous
  Country: DE (occurrence: DE)
  Receive Date: 20130424
  Receipt Date: 20130424
  Transmission Date: 20140414
  Serious: Yes (Other)
  Sender: FDA-Public Use
  Company Number: DE-OTSUKA-02100-EUR-07-0026

PATIENT
  Age: 90 Year
  Sex: Male

DRUGS (8)
  1. PLETAL [Suspect]
     Indication: PERIPHERAL ARTERIAL OCCLUSIVE DISEASE
     Dosage: 100 MG, BID
     Route: 048
     Dates: start: 20070219, end: 20070220
  2. BISOPROLOLHEMIFUMARATE [Concomitant]
     Indication: CORONARY ARTERY DISEASE
     Dosage: 2.5 MG, QD
     Route: 065
  3. BISOPROLOLHEMIFUMARATE [Concomitant]
     Indication: CARDIAC FAILURE
  4. KARVEZIDE [Concomitant]
     Dosage: 1 DF, QD
     Route: 065
  5. FUROSEMIDE [Concomitant]
     Dosage: 60 MG, DAILY DOSE
     Route: 065
  6. ISORBIDE DINITRATE [Concomitant]
     Dosage: 60 MG, QD
     Route: 065
  7. ALLOPURINOL [Concomitant]
     Indication: HYPERURICAEMIA
     Dosage: 300 MG, QD
     Route: 065
  8. PIRACETAM [Concomitant]
     Dosage: 0.5 DF, QD
     Route: 065

REACTIONS (2)
  - Circulatory collapse [Recovered/Resolved]
  - Hypotension [Recovered/Resolved]
